FAERS Safety Report 7129561-9 (Version None)
Quarter: 2010Q4

REPORT INFORMATION
  Report Type: 
  Country: None (occurrence: None)
  Receive Date: 20101130
  Receipt Date: 20101117
  Transmission Date: 20110411
  Serious: Yes (Other)
  Sender: FDA-Public Use
  Company Number: US-ELI_LILLY_AND_COMPANY-US201011005666

PATIENT
  Sex: Female

DRUGS (12)
  1. FORTEO [Suspect]
     Dosage: 20 UG, DAILY (1/D)
  2. PLAVIX [Concomitant]
  3. LIPITOR [Concomitant]
  4. ISOSORBIDE DINITRATE [Concomitant]
  5. TOPROL-XL [Concomitant]
  6. NORVASC [Concomitant]
  7. CALCIUM +VIT D [Concomitant]
  8. CENTRUM [Concomitant]
  9. ASPIRIN [Concomitant]
  10. VESICARE [Concomitant]
  11. IMIPRAMINE [Concomitant]
  12. TYLENOL (CAPLET) [Concomitant]

REACTIONS (10)
  - ASTHENIA [None]
  - BLOOD PRESSURE INCREASED [None]
  - BODY HEIGHT DECREASED [None]
  - CONSTIPATION [None]
  - DIZZINESS [None]
  - MUSCLE SPASMS [None]
  - OFF LABEL USE [None]
  - PALPITATIONS [None]
  - PELVIC FRACTURE [None]
  - SPINAL FRACTURE [None]
